FAERS Safety Report 21253608 (Version 2)
Quarter: 2025Q1

REPORT INFORMATION
  Report Type: Spontaneous
  Country: US (occurrence: US)
  Receive Date: 20220825
  Receipt Date: 20250317
  Transmission Date: 20250408
  Serious: Yes (Death)
  Sender: PFIZER
  Company Number: US-PFIZER INC-202201087161

PATIENT
  Age: 82 Year
  Sex: Male

DRUGS (2)
  1. VYNDAMAX [Suspect]
     Active Substance: TAFAMIDIS
     Indication: Amyloidosis
     Dosage: 61 MG, 1X/DAY
     Route: 048
     Dates: start: 2020
  2. XARELTO [Suspect]
     Active Substance: RIVAROXABAN
     Route: 048

REACTIONS (5)
  - Internal haemorrhage [Fatal]
  - Cardiac failure [Fatal]
  - Renal failure [Fatal]
  - Amyloidosis [Fatal]
  - Hypotension [Fatal]
